FAERS Safety Report 15309855 (Version 1)
Quarter: 2018Q3

REPORT INFORMATION
  Report Type: Spontaneous
  Country: IT (occurrence: IT)
  Receive Date: 20180823
  Receipt Date: 20180823
  Transmission Date: 20181010
  Serious: Yes (Hospitalization, Other)
  Sender: FDA-Public Use
  Company Number: IT-AUROBINDO-AUR-APL-2018-042914

PATIENT
  Age: 52 Year
  Sex: Female

DRUGS (4)
  1. RAMIPRIL. [Suspect]
     Active Substance: RAMIPRIL
     Indication: HYPERTENSION
     Dosage: 10 MILLIGRAM, ONCE A DAY
     Route: 065
  2. HYDROCHLOROTHIAZIDE. [Suspect]
     Active Substance: HYDROCHLOROTHIAZIDE
     Indication: HYPERTENSION
     Dosage: 25 MILLIGRAM, ONCE A DAY
     Route: 065
  3. DOXAZOSIN [Suspect]
     Active Substance: DOXAZOSIN\DOXAZOSIN MESYLATE
     Indication: HYPERTENSION
     Dosage: 4 MILLIGRAM, ONCE A DAY
     Route: 065
  4. AMLODIPINE [Suspect]
     Active Substance: AMLODIPINE BESYLATE
     Indication: HYPERTENSION
     Dosage: 10 MILLIGRAM, ONCE A DAY
     Route: 065

REACTIONS (12)
  - Hypokalaemia [Unknown]
  - Weight increased [Unknown]
  - Asthenia [Unknown]
  - Abnormal dreams [Unknown]
  - Insomnia [Unknown]
  - Disturbance in social behaviour [Unknown]
  - Diabetes mellitus [Unknown]
  - Memory impairment [Unknown]
  - Adrenocortical carcinoma [Not Recovered/Not Resolved]
  - Generalised anxiety disorder [Unknown]
  - Panic disorder [Unknown]
  - Abnormal behaviour [Unknown]
